FAERS Safety Report 8035634-9 (Version None)
Quarter: 2012Q1

REPORT INFORMATION
  Report Type: 
  Country: None (occurrence: None)
  Receive Date: 20120111
  Receipt Date: 20120105
  Transmission Date: 20120608
  Serious: Yes (Other)
  Sender: FDA-Public Use
  Company Number: US-SHIRE-ALL1-2012-00041

PATIENT
  Sex: Female

DRUGS (3)
  1. VYVANSE [Suspect]
     Indication: ATTENTION DEFICIT/HYPERACTIVITY DISORDER
     Dosage: 60 MG, 1X/DAY:QD
     Route: 048
     Dates: start: 20110901
  2. VIIBRYD [Suspect]
     Indication: DEPRESSION
     Dosage: 10 MG, 1X/DAY:QD
     Route: 048
     Dates: start: 20111215
  3. COUMADIN [Concomitant]
     Indication: PRODUCT USED FOR UNKNOWN INDICATION
     Dosage: UNK, UNKNOWN
     Route: 065

REACTIONS (4)
  - DRUG INTERACTION [None]
  - LOSS OF CONSCIOUSNESS [None]
  - HALLUCINATION [None]
  - AMNESIA [None]
